FAERS Safety Report 6173066-9 (Version None)
Quarter: 2009Q2

REPORT INFORMATION
  Report Type: 
  Country: None (occurrence: None)
  Receive Date: 20090428
  Receipt Date: 20090415
  Transmission Date: 20091009
  Serious: Yes (Hospitalization)
  Sender: FDA-Public Use
  Company Number: PAR_02937_2009

PATIENT
  Age: 72 Year
  Sex: Male

DRUGS (5)
  1. IBUPROFEN [Suspect]
     Indication: RESPIRATORY TRACT INFECTION
     Dosage: (DF)
     Dates: start: 20070101
  2. ACETAMINOPHEN [Suspect]
     Indication: RESPIRATORY TRACT INFECTION
     Dosage: (DF)
     Dates: start: 20070101
  3. AMOXICILLIN [Suspect]
     Indication: RESPIRATORY TRACT INFECTION
     Dosage: (DF)
     Dates: start: 20070101
  4. CLARITHROMYCIN [Suspect]
     Indication: RESPIRATORY TRACT INFECTION
     Dosage: (DF)
     Dates: start: 20070101
  5. IMATINIB MESYLATE [Suspect]
     Indication: CHRONIC MYELOID LEUKAEMIA
     Dosage: (400 MG)
     Dates: start: 20040701, end: 20070101

REACTIONS (8)
  - ANAL ABSCESS [None]
  - APLASTIC ANAEMIA [None]
  - DISEASE COMPLICATION [None]
  - ENTEROCOCCAL INFECTION [None]
  - FUNGAL INFECTION [None]
  - IMMUNE SYSTEM DISORDER [None]
  - PANCYTOPENIA [None]
  - STENOTROPHOMONAS INFECTION [None]
